FAERS Safety Report 25406207 (Version 1)
Quarter: 2025Q2

REPORT INFORMATION
  Report Type: Spontaneous
  Country: GB (occurrence: GB)
  Receive Date: 20250606
  Receipt Date: 20250606
  Transmission Date: 20250717
  Serious: Yes (Other)
  Sender: SANDOZ
  Company Number: GB-MHRA-TPP62341365C22275880YC1749038891585

PATIENT
  Age: 78 Year
  Sex: Female
  Weight: 66 kg

DRUGS (12)
  1. RIVASTIGMINE [Suspect]
     Active Substance: RIVASTIGMINE
     Indication: Ill-defined disorder
     Route: 065
     Dates: start: 20250411
  2. ASPIRIN [Concomitant]
     Active Substance: ASPIRIN
     Indication: Ill-defined disorder
     Dosage: ONE TO BE TAKEN EACH MORNING
     Route: 065
     Dates: start: 20241119
  3. COCODAMOL [Concomitant]
     Active Substance: ACETAMINOPHEN\CODEINE PHOSPHATE
     Indication: Ill-defined disorder
     Route: 065
     Dates: start: 20241119
  4. CODEINE PHOSPHATE [Concomitant]
     Active Substance: CODEINE PHOSPHATE
     Indication: Ill-defined disorder
     Dosage: 2 TO BE TAKEN FOUR TIMES DAILY
     Route: 065
     Dates: start: 20250314, end: 20250321
  5. LEVOTHYROXINE [Concomitant]
     Active Substance: LEVOTHYROXINE
     Indication: Ill-defined disorder
     Dosage: 1 TABLET IN THE MORNING
     Route: 065
     Dates: start: 20241119
  6. LOSARTAN [Concomitant]
     Active Substance: LOSARTAN
     Indication: Ill-defined disorder
     Dosage: TAKE ONE DAILY
     Route: 065
     Dates: start: 20241231
  7. METFORMIN [Concomitant]
     Active Substance: METFORMIN HYDROCHLORIDE
     Indication: Ill-defined disorder
     Dosage: ONE TO BE TAKEN WITH BREAKFAST
     Route: 065
     Dates: start: 20241119
  8. MORPHINE SULFATE [Concomitant]
     Active Substance: MORPHINE SULFATE
     Indication: Ill-defined disorder
     Route: 065
     Dates: start: 20250314, end: 20250324
  9. CALCIUM CARBONATE\CHOLECALCIFEROL [Concomitant]
     Active Substance: CALCIUM CARBONATE\CHOLECALCIFEROL
     Indication: Ill-defined disorder
     Dosage: TAKE ONE A DAY
     Route: 065
     Dates: start: 20241119
  10. ACETAMINOPHEN\DEXTROMETHORPHAN HYDROBROMIDE\PROMETHAZINE HYDROCHLORIDE [Concomitant]
     Active Substance: ACETAMINOPHEN\DEXTROMETHORPHAN HYDROBROMIDE\PROMETHAZINE HYDROCHLORIDE
     Indication: Ill-defined disorder
     Route: 065
     Dates: start: 20250319, end: 20250320
  11. BEMPEDOIC ACID [Concomitant]
     Active Substance: BEMPEDOIC ACID
     Indication: Ill-defined disorder
     Dosage: ONE TO BE TAKEN ONCE DAILY
     Route: 065
     Dates: start: 20241119
  12. TERBINAFINE [Concomitant]
     Active Substance: TERBINAFINE
     Indication: Ill-defined disorder
     Dosage: APPLY THINLY TWICE A DAY AS DIRECTED
     Route: 065
     Dates: start: 20241119

REACTIONS (2)
  - Resting tremor [Not Recovered/Not Resolved]
  - Abnormal loss of weight [Not Recovered/Not Resolved]
